FAERS Safety Report 10172959 (Version 1)
Quarter: 2014Q2

REPORT INFORMATION
  Report Type: Spontaneous
  Country: IN (occurrence: None)
  Receive Date: 20140418
  Receipt Date: 20140418
  Transmission Date: 20141212
  Serious: Yes (Hospitalization)
  Sender: FDA-Public Use
  Company Number: 2014GMK008087

PATIENT
  Age: 69 Year
  Sex: Male

DRUGS (5)
  1. LEVOFLOXACIN [Suspect]
     Indication: PYREXIA
  2. LEVOFLOXACIN [Suspect]
     Indication: DIARRHOEA
  3. FURAZOLIDONE [Suspect]
     Indication: PYREXIA
  4. FURAZOLIDONE [Suspect]
     Indication: DIARRHOEA
  5. RABEPRAZOLE (RABEPRAZOLE) [Concomitant]

REACTIONS (11)
  - Toxic epidermal necrolysis [None]
  - Rash generalised [None]
  - Pain [None]
  - Skin erosion [None]
  - Skin exfoliation [None]
  - Dysphagia [None]
  - Mouth ulceration [None]
  - Oral mucosa erosion [None]
  - Generalised erythema [None]
  - Nikolsky^s sign [None]
  - Eye inflammation [None]
